FAERS Safety Report 18924126 (Version 1)
Quarter: 2021Q1

REPORT INFORMATION
  Report Type: Spontaneous
  Country: LB (occurrence: LB)
  Receive Date: 20210222
  Receipt Date: 20210222
  Transmission Date: 20210420
  Serious: Yes (Other)
  Sender: FDA-Public Use
  Company Number: LB-SA-2021SA059279

PATIENT
  Age: 31 Year
  Sex: Female

DRUGS (3)
  1. XYZAL [Suspect]
     Active Substance: LEVOCETIRIZINE DIHYDROCHLORIDE
     Indication: FUNGAL PHARYNGITIS
     Dosage: UNK
     Route: 065
  2. RELVAR ELLIPTA [FLUTICASONE FUROATE;VILANTEROL TRIFENATATE] [Suspect]
     Active Substance: FLUTICASONE FUROATE\VILANTEROL TRIFENATATE
     Indication: ASTHMA
     Dosage: 100/25 DAILY
     Route: 065
     Dates: start: 2021
  3. NASACORT [Suspect]
     Active Substance: TRIAMCINOLONE ACETONIDE
     Indication: FUNGAL PHARYNGITIS
     Dosage: UNK
     Route: 065

REACTIONS (6)
  - Pharyngeal disorder [Unknown]
  - Tachycardia [Unknown]
  - Product use issue [Unknown]
  - Oral disorder [Unknown]
  - Asthma [Unknown]
  - Fungal pharyngitis [Unknown]

NARRATIVE: CASE EVENT DATE: 2021
